FAERS Safety Report 21987138 (Version 8)
Quarter: 2025Q2

REPORT INFORMATION
  Report Type: Report from Study
  Country: CA (occurrence: CA)
  Receive Date: 20230213
  Receipt Date: 20250610
  Transmission Date: 20250717
  Serious: Yes (Other)
  Sender: JOHNSON AND JOHNSON
  Company Number: CA-JNJFOC-20201128136

PATIENT
  Age: 2 Year
  Sex: Female
  Weight: 15 kg

DRUGS (9)
  1. REMICADE [Suspect]
     Active Substance: INFLIXIMAB
     Indication: Colitis ulcerative
     Dosage: 15 MG/KG
     Route: 041
     Dates: start: 20210401
  2. REMICADE [Suspect]
     Active Substance: INFLIXIMAB
     Route: 041
     Dates: start: 20201125
  3. REMICADE [Suspect]
     Active Substance: INFLIXIMAB
     Route: 041
     Dates: start: 20210217
  4. REMICADE [Suspect]
     Active Substance: INFLIXIMAB
     Route: 041
     Dates: start: 20210225
  5. REMICADE [Suspect]
     Active Substance: INFLIXIMAB
     Dosage: AT A BSA DOSING OF 400 MG/M2, WE^D LIKE TO MOVE UP HER DOSE TO 300 MG
     Route: 041
  6. REMICADE [Suspect]
     Active Substance: INFLIXIMAB
     Dosage: UNIT DOSE-15MG/KG
     Route: 041
  7. REMICADE [Suspect]
     Active Substance: INFLIXIMAB
     Dosage: DOSE DECREASED
     Route: 041
  8. REMICADE [Suspect]
     Active Substance: INFLIXIMAB
     Route: 041
     Dates: start: 20201125
  9. REMICADE [Suspect]
     Active Substance: INFLIXIMAB
     Route: 041

REACTIONS (10)
  - Haematochezia [Unknown]
  - Haemorrhage [Not Recovered/Not Resolved]
  - Off label use [Unknown]
  - Gastrointestinal inflammation [Unknown]
  - Fatigue [Unknown]
  - Rash [Unknown]
  - Drug level increased [Unknown]
  - Malaise [Unknown]
  - Drug level decreased [Not Recovered/Not Resolved]
  - Drug ineffective [Unknown]

NARRATIVE: CASE EVENT DATE: 20201125
